FAERS Safety Report 8577417-7 (Version None)
Quarter: 2012Q3

REPORT INFORMATION
  Report Type: 
  Country: None (occurrence: None)
  Receive Date: 20120807
  Receipt Date: 20120802
  Transmission Date: 20120928
  Serious: Yes (Other)
  Sender: FDA-Public Use
  Company Number: US-TEVA-351890USA

PATIENT
  Sex: Female
  Weight: 63.56 kg

DRUGS (2)
  1. WELLBUTRIN [Concomitant]
     Indication: DEPRESSION
     Route: 048
  2. COPAXONE [Suspect]
     Indication: MULTIPLE SCLEROSIS
     Dosage: 20 MILLIGRAM DAILY;
     Route: 058
     Dates: start: 20110101

REACTIONS (1)
  - DEPRESSION [None]
